FAERS Safety Report 13281673 (Version 2)
Quarter: 2017Q1

REPORT INFORMATION
  Report Type: Report from Study
  Country: CA (occurrence: CA)
  Receive Date: 20170301
  Receipt Date: 20170306
  Transmission Date: 20170428
  Serious: Yes (Hospitalization, Other)
  Sender: FDA-Public Use
  Company Number: CA-ROCHE-1231361

PATIENT
  Age: 42 Year
  Sex: Male
  Weight: 83.5 kg

DRUGS (10)
  1. FOLIC ACID. [Concomitant]
     Active Substance: FOLIC ACID
  2. CHAMPIX [Suspect]
     Active Substance: VARENICLINE TARTRATE
     Indication: PRODUCT USED FOR UNKNOWN INDICATION
     Route: 065
     Dates: start: 201509
  3. RISEDRONATE [Concomitant]
     Active Substance: RISEDRONATE SODIUM
  4. PANTOLOC [Concomitant]
     Active Substance: PANTOPRAZOLE SODIUM
  5. ACTEMRA [Suspect]
     Active Substance: TOCILIZUMAB
     Indication: RHEUMATOID ARTHRITIS
     Route: 042
     Dates: start: 20130205
  6. ACTEMRA [Suspect]
     Active Substance: TOCILIZUMAB
     Route: 042
     Dates: start: 20160616
  7. HYDROXYCHLOROQUINE [Concomitant]
     Active Substance: HYDROXYCHLOROQUINE
  8. PROCTOCREAM HC [Suspect]
     Active Substance: HYDROCORTISONE
     Indication: PRODUCT USED FOR UNKNOWN INDICATION
     Route: 065
     Dates: start: 2016, end: 2016
  9. DEXILANT [Concomitant]
     Active Substance: DEXLANSOPRAZOLE
  10. METHOTREXATE. [Concomitant]
     Active Substance: METHOTREXATE

REACTIONS (22)
  - Blood pressure increased [Not Recovered/Not Resolved]
  - Nasal discharge discolouration [Recovering/Resolving]
  - Cough [Recovering/Resolving]
  - Blood pressure diastolic increased [Unknown]
  - Anal fissure [Not Recovered/Not Resolved]
  - Barrett^s oesophagus [Unknown]
  - Palpitations [Recovered/Resolved]
  - Gastrointestinal disorder [Not Recovered/Not Resolved]
  - Anorectal discomfort [Unknown]
  - Palpitations [Unknown]
  - Heart rate increased [Unknown]
  - Chest pain [Recovered/Resolved]
  - Nasopharyngitis [Recovered/Resolved]
  - Liver disorder [Unknown]
  - Anal pruritus [Not Recovered/Not Resolved]
  - Chest pain [Not Recovered/Not Resolved]
  - Rheumatoid arthritis [Not Recovered/Not Resolved]
  - Chills [Recovering/Resolving]
  - Blood pressure diastolic decreased [Unknown]
  - Blood pressure increased [Unknown]
  - Weight increased [Unknown]
  - Anorectal disorder [Not Recovered/Not Resolved]

NARRATIVE: CASE EVENT DATE: 20130527
